FAERS Safety Report 12335136 (Version 1)
Quarter: 2016Q2

REPORT INFORMATION
  Report Type: Spontaneous
  Country: US (occurrence: US)
  Receive Date: 20160504
  Receipt Date: 20160504
  Transmission Date: 20160815
  Serious: Yes (Hospitalization)
  Sender: FDA-Public Use
  Company Number: US-SA-2016SA086511

PATIENT
  Sex: Female
  Weight: 90 kg

DRUGS (11)
  1. SIMVASTATIN. [Concomitant]
     Active Substance: SIMVASTATIN
  2. IRON [Concomitant]
     Active Substance: IRON
  3. GABAPENTIN. [Concomitant]
     Active Substance: GABAPENTIN
  4. POTASSIUM [Concomitant]
     Active Substance: POTASSIUM
  5. PROTONIX [Concomitant]
     Active Substance: PANTOPRAZOLE SODIUM
  6. ASPIRIN. [Concomitant]
     Active Substance: ASPIRIN
  7. LASIX [Suspect]
     Active Substance: FUROSEMIDE
     Indication: DIURETIC THERAPY
     Route: 048
  8. EYLEA [Suspect]
     Active Substance: AFLIBERCEPT
     Indication: DIABETIC RETINAL OEDEMA
     Dosage: DAILY DOSE:0.05 CC , MONTHLY
     Route: 031
     Dates: start: 20160129
  9. LEVEMIR [Concomitant]
     Active Substance: INSULIN DETEMIR
  10. LANTUS [Concomitant]
     Active Substance: INSULIN GLARGINE
  11. LOSARTAN. [Suspect]
     Active Substance: LOSARTAN
     Indication: HYPERTENSION
     Route: 048
     Dates: end: 201602

REACTIONS (1)
  - Hospitalisation [Recovered/Resolved with Sequelae]

NARRATIVE: CASE EVENT DATE: 20160223
